FAERS Safety Report 4388087-6 (Version None)
Quarter: 2004Q2

REPORT INFORMATION
  Report Type: 
  Country: None (occurrence: None)
  Receive Date: 20040629
  Receipt Date: 20040629
  Transmission Date: 20050107
  Serious: Yes (Other)
  Sender: FDA-Public Use
  Company Number: None

PATIENT
  Age: 74 Year
  Sex: Male
  Weight: 65.7716 kg

DRUGS (10)
  1. PEGYLATED INRON [Suspect]
     Indication: METASTATIC MALIGNANT MELANOMA
     Dosage: 33 MG WKLY
     Dates: start: 20040611
  2. PEGYLATED INRON [Suspect]
     Indication: METASTATIC MALIGNANT MELANOMA
     Dosage: 33 MG WKLY
     Dates: start: 20040618
  3. THALIDOMIDE [Suspect]
     Indication: METASTATIC MALIGNANT MELANOMA
     Dosage: 200 MG Q HS
     Dates: start: 20040611, end: 20040624
  4. TOPROL-XL [Concomitant]
  5. ISORDIL [Concomitant]
  6. ACCUPRIL [Concomitant]
  7. PROTONIX [Concomitant]
  8. ACTOS [Concomitant]
  9. LENTE INSULIN [Concomitant]
  10. HUMALOG [Concomitant]

REACTIONS (1)
  - DYSPNOEA [None]
